FAERS Safety Report 25046991 (Version 4)
Quarter: 2025Q2

REPORT INFORMATION
  Report Type: Spontaneous
  Country: CA (occurrence: CA)
  Receive Date: 20250306
  Receipt Date: 20250423
  Transmission Date: 20250717
  Serious: Yes (Other)
  Sender: PFIZER
  Company Number: CA-PFIZER INC-2019225340

PATIENT
  Age: 77 Year
  Sex: Male

DRUGS (7)
  1. BOSULIF [Suspect]
     Active Substance: BOSUTINIB MONOHYDRATE
     Indication: Leukaemia
     Dosage: 300 MG, 1X/DAY
     Route: 048
     Dates: start: 20190719
  2. BOSULIF [Suspect]
     Active Substance: BOSUTINIB MONOHYDRATE
     Dosage: 500 MG, 1X/DAY
     Route: 048
     Dates: end: 202308
  3. BOSULIF [Suspect]
     Active Substance: BOSUTINIB MONOHYDRATE
     Dosage: UNK, ALTERNATE DAY
     Route: 048
  4. BOSULIF [Suspect]
     Active Substance: BOSUTINIB MONOHYDRATE
     Dosage: 500 MG, 1X/DAY
     Route: 048
     Dates: start: 20241003
  5. DONEPEZIL [Concomitant]
     Active Substance: DONEPEZIL
  6. TADALAFIL [Concomitant]
     Active Substance: TADALAFIL
     Dosage: 5 MG, DAILY
  7. TAMSULOSIN [Concomitant]
     Active Substance: TAMSULOSIN
     Dosage: 0.4 MG, DAILY

REACTIONS (5)
  - Dementia [Unknown]
  - Cognitive disorder [Unknown]
  - Skin lesion [Recovered/Resolved]
  - Malaise [Recovered/Resolved]
  - Off label use [Unknown]
